FAERS Safety Report 7882961-1 (Version None)
Quarter: 2011Q4

REPORT INFORMATION
  Report Type: 
  Country: None (occurrence: None)
  Receive Date: 20111101
  Receipt Date: 20111026
  Transmission Date: 20120403
  Serious: Yes (Other)
  Sender: FDA-Public Use
  Company Number: PHHY2011JP95805

PATIENT
  Sex: Female

DRUGS (1)
  1. DICLOFENAC SODIUM [Suspect]
     Dosage: 150 MG, TWO TABLETS THREE TIMES DAILY
     Route: 048

REACTIONS (4)
  - MANIA [None]
  - MOOD SWINGS [None]
  - DEPRESSION [None]
  - SOMNOLENCE [None]
